FAERS Safety Report 10188217 (Version 3)
Quarter: 2014Q2

REPORT INFORMATION
  Report Type: Spontaneous
  Country: FR (occurrence: FR)
  Receive Date: 20140522
  Receipt Date: 20140613
  Transmission Date: 20141212
  Serious: Yes (Hospitalization)
  Sender: FDA-Public Use
  Company Number: FR-PFIZER INC-2014137868

PATIENT
  Age: 81 Year
  Sex: Female

DRUGS (14)
  1. CORDARONE [Suspect]
     Dosage: 200 MG, DAILY
     Route: 048
     Dates: start: 20140417
  2. PARACETAMOL/TRAMADOL [Suspect]
     Dosage: UNK
     Route: 048
     Dates: start: 20140414
  3. CEFTRIAXONE SODIUM [Suspect]
     Indication: URINARY TRACT INFECTION
     Dosage: UNK
     Dates: start: 20140320, end: 20140324
  4. CEFTRIAXONE SODIUM [Suspect]
     Indication: URINARY TRACT INFECTION
     Dosage: 1 G, DAILY
     Route: 058
     Dates: start: 20140415, end: 20140506
  5. FLECAINE LP [Concomitant]
     Dosage: UNK
  6. FLECAINE [Concomitant]
     Dosage: UNK
  7. TEMERIT [Concomitant]
     Dosage: UNK
  8. KARDEGIC [Concomitant]
     Dosage: UNK
  9. COZAAR [Concomitant]
     Dosage: UNK
  10. NEBIVOLOL EG [Concomitant]
     Dosage: UNK
  11. LOVENOX [Concomitant]
     Dosage: UNK
  12. ECONAZOLE [Concomitant]
     Dosage: UNK
  13. XALATAN [Concomitant]
     Dosage: UNK
  14. FURADANTINE [Concomitant]
     Indication: URINARY TRACT INFECTION
     Dosage: UNK
     Dates: start: 20140413, end: 20140415

REACTIONS (2)
  - Neutropenia [Recovered/Resolved]
  - Anaemia [Recovered/Resolved]
